FAERS Safety Report 15849537 (Version 1)
Quarter: 2019Q1

REPORT INFORMATION
  Report Type: Report from Study
  Country: BR (occurrence: BR)
  Receive Date: 20190121
  Receipt Date: 20190121
  Transmission Date: 20190417
  Serious: Yes (Hospitalization)
  Sender: FDA-Public Use
  Company Number: BR-AMREGENT-20190048

PATIENT
  Age: 19 Year
  Sex: Male

DRUGS (7)
  1. CITONEURIN [Concomitant]
     Active Substance: CYANOCOBALAMIN\PYRIDOXINE HYDROCHLORIDE\THIAMINE
     Dosage: 1 IN 1 WK
     Route: 065
  2. VENOFER [Suspect]
     Active Substance: IRON SUCROSE
     Dosage: 1 IN 4 D
     Route: 065
  3. DEXILANT [Suspect]
     Active Substance: DEXLANSOPRAZOLE
     Dosage: 1 IN 1 D
     Route: 065
  4. METICORTEN [Concomitant]
     Active Substance: PREDNISONE
     Dosage: TWO TABLETS ONCE
     Route: 065
  5. MALTOFER FOL TABLETS [Suspect]
     Active Substance: FOLIC ACID\IRON POLYMALTOSE
     Dosage: 1 IN 4 D
     Route: 065
  6. ENTYVIO [Suspect]
     Active Substance: VEDOLIZUMAB
     Dosage: UNKNOWN
     Route: 050
     Dates: start: 20181002
  7. VITERGAN ZINCO PL [Concomitant]
     Dosage: 1 IN 1 D
     Route: 065

REACTIONS (1)
  - Enterocolitis [Not Recovered/Not Resolved]

NARRATIVE: CASE EVENT DATE: 20181210
